FAERS Safety Report 9307527 (Version 1)
Quarter: 2013Q2

REPORT INFORMATION
  Report Type: Spontaneous
  Country: US (occurrence: US)
  Receive Date: 20130524
  Receipt Date: 20130524
  Transmission Date: 20140414
  Serious: Yes (Hospitalization, Other)
  Sender: FDA-Public Use
  Company Number: US-JNJFOC-20130508420

PATIENT
  Age: 7 Decade
  Sex: Male

DRUGS (3)
  1. XARELTO [Suspect]
     Indication: CEREBROVASCULAR ACCIDENT PROPHYLAXIS
     Route: 065
     Dates: end: 20130510
  2. XARELTO [Suspect]
     Indication: ATRIAL FIBRILLATION
     Route: 065
     Dates: end: 20130510
  3. SOTALOL [Concomitant]
     Route: 065

REACTIONS (2)
  - Duodenal ulcer haemorrhage [Recovered/Resolved]
  - Duodenal ulcer [Recovered/Resolved]
